FAERS Safety Report 5018139-9 (Version None)
Quarter: 2006Q2

REPORT INFORMATION
  Report Type: 
  Country: None (occurrence: None)
  Receive Date: 20060605
  Receipt Date: 20060523
  Transmission Date: 20061013
  Serious: Yes (Other)
  Sender: FDA-Public Use
  Company Number: GB-JNJFOC-20051005170

PATIENT
  Sex: Female

DRUGS (2)
  1. GYNO-PEVARYL [Suspect]
     Indication: CANDIDIASIS
     Route: 067
  2. CANESTAN [Concomitant]

REACTIONS (1)
  - UTERINE CERVICAL EROSION [None]
